FAERS Safety Report 5127440-X (Version None)
Quarter: 2006Q4

REPORT INFORMATION
  Report Type: 
  Country: None (occurrence: None)
  Receive Date: 20061010
  Receipt Date: 20060925
  Transmission Date: 20070319
  Serious: Yes (Other)
  Sender: FDA-Public Use
  Company Number: 2006115932

PATIENT
  Age: 71 Year
  Sex: Male
  Weight: 97 kg

DRUGS (1)
  1. SUTENT [Suspect]
     Indication: RENAL CANCER METASTATIC
     Dosage: 50 MG (50 MG, 1 IN 1 D), ORAL
     Route: 048
     Dates: start: 20060620, end: 20060717

REACTIONS (2)
  - CONDITION AGGRAVATED [None]
  - GASTROINTESTINAL FUNGAL INFECTION [None]
